FAERS Safety Report 12687831 (Version 1)
Quarter: 2016Q3

REPORT INFORMATION
  Report Type: Spontaneous
  Country: US (occurrence: US)
  Receive Date: 20160826
  Receipt Date: 20160826
  Transmission Date: 20161109
  Serious: Yes (Hospitalization, Other)
  Sender: FDA-Public Use
  Company Number: US-ALEMBIC PHARMACUETICALS LIMITED-2016SCAL000694

PATIENT

DRUGS (12)
  1. THIAMINE. [Concomitant]
     Active Substance: THIAMINE
     Indication: EARLY INFANTILE EPILEPTIC ENCEPHALOPATHY WITH BURST-SUPPRESSION
  2. ACYCLOVIR                          /00587301/ [Concomitant]
     Active Substance: ACYCLOVIR
     Indication: PRODUCT USED FOR UNKNOWN INDICATION
     Dosage: UNK
  3. LACOSAMIDE. [Suspect]
     Active Substance: LACOSAMIDE
     Indication: EARLY INFANTILE EPILEPTIC ENCEPHALOPATHY WITH BURST-SUPPRESSION
     Dosage: UNK
  4. FOSPHENYTOIN [Concomitant]
     Active Substance: FOSPHENYTOIN\FOSPHENYTOIN SODIUM
     Indication: EARLY INFANTILE EPILEPTIC ENCEPHALOPATHY WITH BURST-SUPPRESSION
     Dosage: UNK
  5. DEXTROMETHORPHAN [Concomitant]
     Active Substance: DEXTROMETHORPHAN
     Indication: EARLY INFANTILE EPILEPTIC ENCEPHALOPATHY WITH BURST-SUPPRESSION
     Dosage: UNK
  6. PHENOBARBITAL. [Concomitant]
     Active Substance: PHENOBARBITAL
     Indication: EARLY INFANTILE EPILEPTIC ENCEPHALOPATHY WITH BURST-SUPPRESSION
     Dosage: UNK
  7. LEVETIRACETAM. [Concomitant]
     Active Substance: LEVETIRACETAM
     Indication: EARLY INFANTILE EPILEPTIC ENCEPHALOPATHY WITH BURST-SUPPRESSION
     Dosage: UNK
  8. CLONAZEPAM. [Concomitant]
     Active Substance: CLONAZEPAM
     Indication: EARLY INFANTILE EPILEPTIC ENCEPHALOPATHY WITH BURST-SUPPRESSION
     Dosage: UNK
  9. PYRIDOXAL PHOSPHATE [Concomitant]
     Active Substance: PYRIDOXAL PHOSPHATE
     Indication: EARLY INFANTILE EPILEPTIC ENCEPHALOPATHY WITH BURST-SUPPRESSION
     Dosage: UNK
  10. PYRIDOXINE [Concomitant]
     Active Substance: PYRIDOXINE
     Indication: EARLY INFANTILE EPILEPTIC ENCEPHALOPATHY WITH BURST-SUPPRESSION
  11. TOPIRAMATE. [Concomitant]
     Active Substance: TOPIRAMATE
     Indication: EARLY INFANTILE EPILEPTIC ENCEPHALOPATHY WITH BURST-SUPPRESSION
     Dosage: UNK
  12. FOLINIC ACID [Concomitant]
     Active Substance: LEUCOVORIN
     Indication: EARLY INFANTILE EPILEPTIC ENCEPHALOPATHY WITH BURST-SUPPRESSION
     Dosage: UNK

REACTIONS (3)
  - Condition aggravated [Recovering/Resolving]
  - Seizure [Recovering/Resolving]
  - Drug ineffective [Unknown]
